FAERS Safety Report 20442482 (Version 1)
Quarter: 2022Q1

REPORT INFORMATION
  Report Type: Spontaneous
  Country: US (occurrence: US)
  Receive Date: 20220208
  Receipt Date: 20220208
  Transmission Date: 20220424
  Serious: No
  Sender: FDA-Public Use
  Company Number: US-APOTEX-2022AP002243

PATIENT
  Sex: Female

DRUGS (4)
  1. FLUTICASONE [Suspect]
     Active Substance: FLUTICASONE
     Indication: Seasonal allergy
     Dosage: 2 DOSAGE FORM, QD (1 SPRAY IN EACH NOSTRIL ONCE A DAY)
     Route: 045
     Dates: start: 202201
  2. SYNTHROID [Concomitant]
     Active Substance: LEVOTHYROXINE SODIUM
     Indication: Product used for unknown indication
     Dosage: UNK UNK, Q.AM
     Route: 048
  3. ZETIA [Concomitant]
     Active Substance: EZETIMIBE
     Indication: Product used for unknown indication
     Dosage: UNK UNK, Q.AM
     Route: 048
  4. DEXILANT [Concomitant]
     Active Substance: DEXLANSOPRAZOLE
     Indication: Product used for unknown indication
     Dosage: UNK UNK, Q.AM
     Route: 048

REACTIONS (3)
  - Burning sensation [Recovered/Resolved]
  - Erythema [Recovered/Resolved]
  - Flushing [Recovered/Resolved]

NARRATIVE: CASE EVENT DATE: 20220114
